FAERS Safety Report 9478049 (Version 2)
Quarter: 2013Q3

REPORT INFORMATION
  Report Type: Report from Study
  Country: HU (occurrence: HU)
  Receive Date: 20130827
  Receipt Date: 20130827
  Transmission Date: 20140515
  Serious: Yes (Death, Other)
  Sender: FDA-Public Use
  Company Number: PHHO2011HU08441

PATIENT
  Age: 55 Year
  Sex: Male
  Weight: 98 kg

DRUGS (8)
  1. PLACEBO [Suspect]
     Indication: CORONARY ARTERY DISEASE
     Dosage: UNK
     Route: 048
     Dates: start: 20110117
  2. ALISKIREN [Suspect]
     Indication: CORONARY ARTERY DISEASE
     Dosage: 150 MG, UNK
  3. ASA [Concomitant]
     Indication: MYOCARDIAL ISCHAEMIA
     Dosage: 100 MG, QD
     Route: 048
     Dates: start: 2010
  4. BETALOC ZOK [Concomitant]
     Indication: HYPERTENSION
     Dosage: 50 MG, QD
     Route: 048
     Dates: start: 2010
  5. CLOPIDOGREL BISULFATE [Concomitant]
     Indication: MYOCARDIAL ISCHAEMIA
     Dosage: 75 MG, QD
     Route: 048
     Dates: start: 20100110
  6. TENAXUM [Concomitant]
     Indication: HYPERTENSION
     Dosage: 1 MG, BID
     Route: 048
     Dates: start: 2010
  7. TRITACE [Concomitant]
     Indication: HYPERTENSION
     Dosage: 100 MG, QD
     Dates: start: 2010
  8. TRIASYN (AMOXICILLIN TRIHYDRATE) [Concomitant]
     Indication: HYPERTENSION
     Dosage: 5 MG, QD
     Route: 048
     Dates: start: 2010

REACTIONS (2)
  - Cardiac arrest [Fatal]
  - Angina pectoris [Unknown]
